FAERS Safety Report 9437554 (Version 2)
Quarter: 2013Q3

REPORT INFORMATION
  Report Type: Spontaneous
  Country: JP (occurrence: JP)
  Receive Date: 20130802
  Receipt Date: 20130903
  Transmission Date: 20140515
  Serious: Yes (Life-Threatening, Hospitalization, Other)
  Sender: FDA-Public Use
  Company Number: JP-PFIZER INC-2013223118

PATIENT
  Age: 32 Year
  Sex: Female
  Weight: 100 kg

DRUGS (2)
  1. LYRICA [Suspect]
     Indication: BACK PAIN
     Dosage: 150 MG DAILY
     Route: 048
     Dates: start: 201301
  2. TRAMCET [Suspect]
     Indication: BACK PAIN
     Dosage: UNK

REACTIONS (4)
  - Intentional overdose [Recovered/Resolved]
  - Altered state of consciousness [Recovered/Resolved]
  - Hypoventilation [Recovered/Resolved]
  - Bronchostenosis [Recovered/Resolved]
